FAERS Safety Report 9447591 (Version 1)
Quarter: 2013Q3

REPORT INFORMATION
  Report Type: Spontaneous
  Country: US (occurrence: US)
  Receive Date: 20130808
  Receipt Date: 20130808
  Transmission Date: 20140515
  Serious: Yes (Other)
  Sender: FDA-Public Use
  Company Number: US-AMGEN-USASP2013054599

PATIENT
  Age: 18 Year
  Sex: Female

DRUGS (1)
  1. NEUPOGEN [Suspect]
     Indication: INFANTILE GENETIC AGRANULOCYTOSIS
     Dosage: UNK UNK, DAILY
     Route: 065

REACTIONS (3)
  - Gene mutation identification test positive [Unknown]
  - Pain [Unknown]
  - Bone pain [Unknown]
